FAERS Safety Report 16119018 (Version 1)
Quarter: 2019Q1

REPORT INFORMATION
  Report Type: Spontaneous
  Country: None (occurrence: DK)
  Receive Date: 20190326
  Receipt Date: 20190326
  Transmission Date: 20190418
  Serious: Yes (Hospitalization)
  Sender: FDA-Public Use
  Company Number: DK-ENDO PHARMACEUTICALS INC-2019-103121

PATIENT
  Age: 26 Year
  Sex: Male

DRUGS (3)
  1. ELTROXIN [Concomitant]
     Active Substance: LEVOTHYROXINE
     Indication: MYXOEDEMA
     Dosage: UNK UNKNOWN, UNKNOWN
     Route: 065
     Dates: start: 2006
  2. HYDROCORTISONE. [Concomitant]
     Active Substance: HYDROCORTISONE
     Indication: HYPOPITUITARISM
     Dosage: UNK UNKNOWN, UNKNOWN
     Route: 065
  3. AVEED [Suspect]
     Active Substance: TESTOSTERONE UNDECANOATE
     Indication: HYPOPITUITARISM
     Dosage: 1000 MG, EVERY 3 MONTHS
     Route: 030
     Dates: end: 201806

REACTIONS (13)
  - Suicidal ideation [Not Recovered/Not Resolved]
  - Anger [Unknown]
  - Angina pectoris [Not Recovered/Not Resolved]
  - Mental disorder [Not Recovered/Not Resolved]
  - Schizophrenia [Not Recovered/Not Resolved]
  - Psychotic disorder [Unknown]
  - General physical health deterioration [Not Recovered/Not Resolved]
  - Palpitations [Unknown]
  - Abdominal discomfort [Unknown]
  - Chest pain [Unknown]
  - Hallucination, auditory [Unknown]
  - Thinking abnormal [Unknown]
  - Depression [Unknown]

NARRATIVE: CASE EVENT DATE: 20170308
